FAERS Safety Report 8995046 (Version 1)
Quarter: 2013Q1

REPORT INFORMATION
  Report Type: Report from Study
  Country: DE (occurrence: DE)
  Receive Date: 20130102
  Receipt Date: 20130102
  Transmission Date: 20140127
  Serious: Yes (Death, Hospitalization)
  Sender: FDA-Public Use
  Company Number: DE-BRISTOL-MYERS SQUIBB COMPANY-14991459

PATIENT
  Age: 74 Year
  Sex: Male

DRUGS (4)
  1. DASATINIB [Suspect]
     Indication: PROSTATE CANCER
     Dates: start: 20091015, end: 20100223
  2. DOCETAXEL [Suspect]
     Indication: PROSTATE CANCER
     Route: 042
  3. PREDNISONE [Suspect]
     Indication: PROSTATE CANCER
     Route: 048
  4. DEXAMETHASONE [Suspect]
     Indication: PREMEDICATION

REACTIONS (1)
  - Respiratory failure [Fatal]
